FAERS Safety Report 9248753 (Version 1)
Quarter: 2013Q2

REPORT INFORMATION
  Report Type: Spontaneous
  Country: US (occurrence: None)
  Receive Date: 20130419
  Receipt Date: 20130419
  Transmission Date: 20140414
  Serious: Yes (Other)
  Sender: FDA-Public Use
  Company Number: None

PATIENT
  Sex: Female
  Weight: 66.23 kg

DRUGS (3)
  1. LIPITOR [Suspect]
     Indication: BLOOD CHOLESTEROL INCREASED
     Dates: start: 1995, end: 2012
  2. ATORVASTATIN [Suspect]
     Route: 048
     Dates: start: 2012, end: 20130309
  3. LISINOPRIL [Suspect]
     Dates: start: 20120304

REACTIONS (31)
  - Myalgia [None]
  - Headache [None]
  - Asthenia [None]
  - Hypoaesthesia [None]
  - Vertigo [None]
  - Dizziness [None]
  - Nervousness [None]
  - Muscle spasms [None]
  - Weight decreased [None]
  - Vision blurred [None]
  - Rash [None]
  - Pruritus [None]
  - Constipation [None]
  - Urticaria [None]
  - Infection [None]
  - Fatigue [None]
  - Swollen tongue [None]
  - Neck pain [None]
  - Dry mouth [None]
  - Chest pain [None]
  - Insomnia [None]
  - Oropharyngeal pain [None]
  - Hepatic pain [None]
  - Renal disorder [None]
  - Contusion [None]
  - Decreased appetite [None]
  - Depression [None]
  - Post-traumatic stress disorder [None]
  - Back pain [None]
  - Arthralgia [None]
  - Dyspnoea [None]
